FAERS Safety Report 9684094 (Version 5)
Quarter: 2013Q4

REPORT INFORMATION
  Report Type: Spontaneous
  Country: US (occurrence: US)
  Receive Date: 20131112
  Receipt Date: 20131209
  Transmission Date: 20140711
  Serious: Yes (Disabling, Other)
  Sender: FDA-Public Use
  Company Number: US-PFIZER INC-2013318983

PATIENT
  Age: 78 Year
  Sex: Male
  Weight: 104 kg

DRUGS (14)
  1. TOVIAZ [Suspect]
     Indication: URINARY INCONTINENCE
     Dosage: 4 MG, UNK
     Dates: start: 2009
  2. TOVIAZ [Suspect]
     Dosage: 8 MG, DAILY
     Dates: start: 20130529
  3. WARFARIN [Concomitant]
     Indication: BLOOD VISCOSITY INCREASED
     Dosage: UNK, DAILY
  4. METOPROLOL [Concomitant]
     Dosage: UNK
  5. METFORMIN [Concomitant]
     Dosage: UNK
  6. ATORVASTATIN [Concomitant]
     Dosage: UNK
  7. LUMIGAN [Concomitant]
     Dosage: UNK
  8. LACTULOSE [Concomitant]
     Dosage: UNK
  9. FINASTERIDE [Concomitant]
     Dosage: UNK
  10. LEVOTHYROXINE [Concomitant]
     Dosage: UNK
  11. DIGOXIN [Concomitant]
     Dosage: UNK
  12. SPIRONOLACTONE [Concomitant]
     Dosage: UNK
  13. OCUVITE [Concomitant]
     Dosage: UNK
  14. CALCIUM [Concomitant]
     Dosage: UNK

REACTIONS (7)
  - Neoplasm malignant [Unknown]
  - Gastrointestinal disorder [Unknown]
  - Liver disorder [Unknown]
  - Arthropathy [Unknown]
  - Cardiac disorder [Unknown]
  - Hernia [Unknown]
  - Urinary incontinence [Unknown]
